FAERS Safety Report 11822621 (Version 2)
Quarter: 2016Q2

REPORT INFORMATION
  Report Type: Spontaneous
  Country: US (occurrence: US)
  Receive Date: 20151210
  Receipt Date: 20160517
  Transmission Date: 20160815
  Serious: No
  Sender: FDA-Public Use
  Company Number: US-JNJFOC-20150603674

PATIENT
  Sex: Female

DRUGS (14)
  1. OCUVITE (VITAMIN COMBINATIONS) [Concomitant]
  2. BONIVA [Concomitant]
     Active Substance: IBANDRONATE SODIUM
  3. ATENOLOL. [Concomitant]
     Active Substance: ATENOLOL
  4. MUCINEX [Concomitant]
     Active Substance: GUAIFENESIN
  5. VITAMIN B12 [Concomitant]
     Active Substance: CYANOCOBALAMIN
  6. BABY ASPIRIN [Concomitant]
     Active Substance: ASPIRIN
  7. TENORMIN [Concomitant]
     Active Substance: ATENOLOL
  8. ACYCLOVIR. [Concomitant]
     Active Substance: ACYCLOVIR
  9. CENTRUM SILVER [Concomitant]
     Active Substance: MINERALS\VITAMINS
  10. VITAMIN C [Concomitant]
     Active Substance: ASCORBIC ACID
  11. NEXIUM [Concomitant]
     Active Substance: ESOMEPRAZOLE MAGNESIUM
  12. L-LYSINE [Concomitant]
     Active Substance: LYSINE
  13. CALCIUM [Concomitant]
     Active Substance: CALCIUM
  14. IMBRUVICA [Suspect]
     Active Substance: IBRUTINIB
     Indication: CHRONIC LYMPHOCYTIC LEUKAEMIA
     Route: 048
     Dates: start: 20150417

REACTIONS (4)
  - Confusional state [Unknown]
  - Diarrhoea [Not Recovered/Not Resolved]
  - White blood cell count increased [Not Recovered/Not Resolved]
  - Bone pain [Unknown]

NARRATIVE: CASE EVENT DATE: 2015
